FAERS Safety Report 10109716 (Version 1)
Quarter: 2014Q2

REPORT INFORMATION
  Report Type: Spontaneous
  Country: GB (occurrence: None)
  Receive Date: 20140423
  Receipt Date: 20140423
  Transmission Date: 20141212
  Serious: Yes (Other)
  Sender: FDA-Public Use
  Company Number: FK201401430

PATIENT
  Sex: Female

DRUGS (2)
  1. FLUOROURACIL (FLUOROURACIL) [Suspect]
     Indication: RECTAL ADENOCARCINOMA
     Dosage: SIX CYCLES
  2. OXALIPLATIN (OXALIPLATIN) [Suspect]
     Indication: RECTAL ADENOCARCINOMA
     Dosage: SIX CYCLES

REACTIONS (2)
  - Hepatic steatosis [None]
  - Neuropathy peripheral [None]
